FAERS Safety Report 16813894 (Version 5)
Quarter: 2019Q4

REPORT INFORMATION
  Report Type: Spontaneous
  Country: GB (occurrence: GB)
  Receive Date: 20190917
  Receipt Date: 20191113
  Transmission Date: 20200122
  Serious: Yes (Death, Other)
  Sender: FDA-Public Use
  Company Number: RU-SA-2019SA256715

PATIENT
  Age: 17 Year
  Sex: Male

DRUGS (15)
  1. TOCILIZUMAB. [Concomitant]
     Active Substance: TOCILIZUMAB
     Indication: STEM CELL TRANSPLANT
  2. CAMPATH [Suspect]
     Active Substance: ALEMTUZUMAB
     Indication: BONE MARROW CONDITIONING REGIMEN
     Dosage: UNK, UNK
     Route: 042
  3. ALKERAN [Suspect]
     Active Substance: MELPHALAN
     Indication: IMMUNODEFICIENCY
  4. THALIDOMIDE [Concomitant]
     Active Substance: THALIDOMIDE
     Indication: STEM CELL TRANSPLANT
  5. ANAKINRA [Concomitant]
     Active Substance: ANAKINRA
     Indication: STEM CELL TRANSPLANT
  6. CAMPATH [Suspect]
     Active Substance: ALEMTUZUMAB
     Indication: CHOLANGITIS SCLEROSING
  7. ALKERAN [Suspect]
     Active Substance: MELPHALAN
     Indication: CHOLANGITIS SCLEROSING
     Dosage: UNK, UNK
     Route: 065
  8. CYCLOSPORINE. [Concomitant]
     Active Substance: CYCLOSPORINE
     Indication: STEM CELL TRANSPLANT
  9. FLUDARABINE PHOSPHATE. [Suspect]
     Active Substance: FLUDARABINE PHOSPHATE
     Indication: BONE MARROW TRANSPLANT
  10. FLUDARABINE PHOSPHATE. [Suspect]
     Active Substance: FLUDARABINE PHOSPHATE
     Indication: IMMUNODEFICIENCY
  11. ALKERAN [Suspect]
     Active Substance: MELPHALAN
     Indication: BONE MARROW TRANSPLANT
  12. ETANERCEPT [Concomitant]
     Active Substance: ETANERCEPT
     Indication: STEM CELL TRANSPLANT
  13. FLUDARABINE PHOSPHATE. [Suspect]
     Active Substance: FLUDARABINE PHOSPHATE
     Indication: CHOLANGITIS SCLEROSING
     Dosage: UNK, UNK
     Route: 065
  14. CAMPATH [Suspect]
     Active Substance: ALEMTUZUMAB
     Indication: IMMUNODEFICIENCY
     Dosage: UNK
  15. METHOTREXATE. [Suspect]
     Active Substance: METHOTREXATE
     Indication: STEM CELL TRANSPLANT

REACTIONS (3)
  - Off label use [Unknown]
  - Encephalitis mumps [Fatal]
  - Haemolysis [Unknown]
